FAERS Safety Report 8366888-7 (Version None)
Quarter: 2012Q1

REPORT INFORMATION
  Report Type: 
  Country: None (occurrence: None)
  Receive Date: 20120323
  Receipt Date: 20110406
  Transmission Date: 20120608
  Serious: Yes (Hospitalization, Other)
  Sender: FDA-Public Use
  Company Number: 163-21880-11040731

PATIENT
  Age: 61 Year
  Sex: Male
  Weight: 134.7183 kg

DRUGS (14)
  1. WARFARIN SODIUM [Concomitant]
  2. HUMALOG [Concomitant]
  3. OXYCODONE-ACETAMINOPHEN (OXYCOCET) (TABLETS) [Concomitant]
  4. REVLIMID [Suspect]
     Indication: MULTIPLE MYELOMA
     Dosage: 25 MG, DAILY X 21 DAYS, PO
     Route: 048
     Dates: start: 20110217
  5. SIMVASTATIN [Concomitant]
  6. DEXAMETHASONE [Concomitant]
  7. DOCUSATE SODIUM (DOCUSATE SODIUM) (CAPSULES) [Concomitant]
  8. MULTIVITAMINS (MULTIVITAMINS) (TABLETS) [Concomitant]
  9. VELCADE (SOLUTION) [Concomitant]
  10. LANTUS [Concomitant]
  11. GABAPENTIN [Concomitant]
  12. ASPIRIN [Concomitant]
  13. PANTOPRAZOLE (PANTOPRAZOLE) (TABLETS) [Concomitant]
  14. ZOLPIDEM TARTRATE [Concomitant]

REACTIONS (1)
  - PNEUMONIA [None]
